FAERS Safety Report 7621506-8 (Version None)
Quarter: 2011Q3

REPORT INFORMATION
  Report Type: 
  Country: None (occurrence: None)
  Receive Date: 20110719
  Receipt Date: 20110714
  Transmission Date: 20111222
  Serious: Yes (Hospitalization)
  Sender: FDA-Public Use
  Company Number: JP-PFIZER INC-2011132569

PATIENT
  Age: 70 Year
  Sex: Male
  Weight: 58 kg

DRUGS (13)
  1. HANP [Concomitant]
     Dosage: UNK
  2. LIVALO [Concomitant]
     Dosage: UNK
  3. NITROGLYCERIN [Concomitant]
     Dosage: UNK
  4. CARVEDILOL [Concomitant]
     Dosage: UNK
  5. AMIODARONE HCL [Suspect]
     Dosage: 1.5MG/ML; INFUSION RATE 33ML/HR
     Route: 042
     Dates: start: 20110609
  6. AMIODARONE HCL [Suspect]
     Indication: ATRIAL FIBRILLATION
     Dosage: 200 MG, 1X/DAY
     Route: 048
     Dates: start: 20110610, end: 20110617
  7. PERINDOPRIL ERBUMINE [Concomitant]
     Dosage: UNK
  8. AMIODARONE HCL [Suspect]
     Dosage: 1.25 MG/ML; INFUSION RATE 10ML/MIN
     Route: 042
     Dates: start: 20110607
  9. AMIODARONE HCL [Suspect]
     Dosage: 1.5MG/ML; INFUSION RATE 17ML/HR
     Route: 042
     Dates: start: 20110607, end: 20110613
  10. ASPIRIN [Concomitant]
     Dosage: UNK
  11. PLAVIX [Concomitant]
     Dosage: UNK
  12. AMIODARONE HCL [Suspect]
     Indication: ACUTE MYOCARDIAL INFARCTION
  13. UNASYN [Concomitant]
     Dosage: UNK

REACTIONS (1)
  - INTERSTITIAL LUNG DISEASE [None]
